FAERS Safety Report 7760934-7 (Version None)
Quarter: 2011Q3

REPORT INFORMATION
  Report Type: 
  Country: None (occurrence: None)
  Receive Date: 20110920
  Receipt Date: 20110906
  Transmission Date: 20111222
  Serious: Yes (Death, Other)
  Sender: FDA-Public Use
  Company Number: GB-RANBAXY-2007RR-11892

PATIENT

DRUGS (5)
  1. DICLOFENAC SODIUM [Suspect]
     Indication: PUBIC PAIN
     Dosage: 50 MG, TID
     Route: 064
     Dates: start: 20070730, end: 20070807
  2. FERROUS SULPHATE 200MG TABLETS [Concomitant]
     Indication: ANAEMIA
     Dosage: 200 MG, UNK
     Route: 048
     Dates: start: 20070531
  3. AMOXICILLIN [Concomitant]
     Indication: TOOTH EXTRACTION
     Dosage: UNK
     Route: 048
     Dates: start: 20070517
  4. ACETAMINOPHEN AND CODEINE PHOSPHATE [Concomitant]
     Indication: PAIN
     Dosage: UNK
     Route: 048
     Dates: start: 20070611
  5. ACETAMINPHEN AND CODEINE PHOSPHATE [Suspect]
     Indication: PUBIC PAIN
     Dosage: UNK
     Route: 064
     Dates: start: 20070807, end: 20070810

REACTIONS (1)
  - INTRA-UTERINE DEATH [None]
